FAERS Safety Report 10586689 (Version 1)
Quarter: 2014Q4

REPORT INFORMATION
  Report Type: Spontaneous
  Country: US (occurrence: None)
  Receive Date: 20141114
  Receipt Date: 20141114
  Transmission Date: 20150529
  Serious: No
  Sender: FDA-Public Use
  Company Number: None

PATIENT
  Age: 84 Year
  Sex: Female

DRUGS (1)
  1. ASTROGLIDE GEL BIOFILM [Suspect]
     Active Substance: CHLORHEXIDINE GLUCONATE\GLUCONOLACTONE\GLYCERIN\HYDROXYETHYL CELLULOSE\METHYLPARABEN\SODIUM HYDROXIDE\WATER
     Indication: VULVOVAGINAL DRYNESS
     Dosage: ONCE DAILY VAGINAL
     Route: 067
     Dates: start: 20141110, end: 20141110

REACTIONS (1)
  - Hypersensitivity [None]

NARRATIVE: CASE EVENT DATE: 20141110
